FAERS Safety Report 10034421 (Version 1)
Quarter: 2014Q1

REPORT INFORMATION
  Report Type: Spontaneous
  Country: CA (occurrence: CA)
  Receive Date: 20140325
  Receipt Date: 20140325
  Transmission Date: 20141002
  Serious: Yes (Other)
  Sender: FDA-Public Use
  Company Number: CA-AMGEN-CANSP2014020409

PATIENT
  Age: 74 Year
  Sex: Female

DRUGS (4)
  1. ENBREL [Suspect]
     Indication: RHEUMATOID ARTHRITIS
     Dosage: 50 MG, 2 TIMES/WK
     Route: 065
     Dates: start: 20040901
  2. ACTEMRA [Concomitant]
     Dosage: UNK
  3. METHOTREXATE [Concomitant]
     Dosage: UNK
  4. METFORMIN [Concomitant]
     Dosage: UNK

REACTIONS (11)
  - Bladder cancer [Unknown]
  - Blood disorder [Unknown]
  - Hepatic lesion [Unknown]
  - Blood iron decreased [Unknown]
  - Full blood count decreased [Unknown]
  - Basal cell carcinoma [Unknown]
  - Arthritis [Unknown]
  - Drug ineffective [Unknown]
  - Mobility decreased [Unknown]
  - Injection site pain [Unknown]
  - Herpes zoster [Unknown]
